FAERS Safety Report 5464450-7 (Version None)
Quarter: 2007Q3

REPORT INFORMATION
  Report Type: 
  Country: None (occurrence: None)
  Receive Date: 20070921
  Receipt Date: 20070918
  Transmission Date: 20080115
  Serious: Yes (Death)
  Sender: FDA-Public Use
  Company Number: US-BRISTOL-MYERS SQUIBB COMPANY-13912779

PATIENT
  Age: 20 Year
  Sex: Male

DRUGS (3)
  1. ABILIFY [Suspect]
  2. SEROQUEL [Suspect]
  3. DEPAKOTE [Suspect]

REACTIONS (1)
  - DEATH [None]
